FAERS Safety Report 5015365-X (Version None)
Quarter: 2006Q2

REPORT INFORMATION
  Report Type: 
  Country: None (occurrence: None)
  Receive Date: 20060601
  Receipt Date: 20060522
  Transmission Date: 20061013
  Serious: Yes (Other)
  Sender: FDA-Public Use
  Company Number: US-JNJFOC-20060505569

PATIENT
  Sex: Female
  Weight: 72.58 kg

DRUGS (4)
  1. FENTANYL TRANSDERMAL SYSTEM [Suspect]
     Route: 062
  2. METHOTREXATE [Concomitant]
     Indication: RHEUMATOID ARTHRITIS
     Dosage: 0.9 UNITS, WEEKLY, SOLUTION, INTRAMUSCULAR
     Route: 030
     Dates: start: 20030101
  3. REMICADE [Concomitant]
     Indication: RHEUMATOID ARTHRITIS
     Dosage: 4 UNITS, 8 TIMES PER YEAR, SOLUTION, INTRAVENOUS
     Route: 042
     Dates: start: 20030101
  4. XANAX [Concomitant]
     Route: 048
     Dates: start: 20030101

REACTIONS (2)
  - HYPERHIDROSIS [None]
  - HYPOTHYROIDISM [None]
